FAERS Safety Report 24432382 (Version 1)
Quarter: 2024Q4

REPORT INFORMATION
  Report Type: Spontaneous
  Country: DE (occurrence: DE)
  Receive Date: 20241014
  Receipt Date: 20241014
  Transmission Date: 20250114
  Serious: Yes (Other)
  Sender: DR REDDYS
  Company Number: None

PATIENT
  Age: 79 Year
  Sex: Female
  Weight: 65 kg

DRUGS (4)
  1. CAPECITABINE [Suspect]
     Active Substance: CAPECITABINE
     Indication: Breast cancer
     Dosage: PATIENT RECEIVED MOST RECENT DOSE OF CAPECITABINE (4000 MG) DAILY ON 24-MAR-2019.
     Route: 048
     Dates: start: 20190318
  2. CAPECITABINE [Suspect]
     Active Substance: CAPECITABINE
     Dosage: PATIENT RECEIVED MOST RECENT DOSE OF CAPECITABINE (3000 MG) DAILY ON 21-MAY-2019.
     Route: 048
  3. TRASTUZUMAB [Suspect]
     Active Substance: TRASTUZUMAB
     Indication: Breast cancer
     Dosage: MOST RECENT DOSE ADMINISTERED ON 13-AUG-2019.
     Route: 042
     Dates: start: 20190318
  4. TRASTUZUMAB [Suspect]
     Active Substance: TRASTUZUMAB
     Dosage: MOST RECENT DOSE ADMINISTERED ON 13-AUG-2019.
     Route: 042
     Dates: start: 20190813

REACTIONS (4)
  - Stomatitis [Recovered/Resolved]
  - Dyspnoea [Not Recovered/Not Resolved]
  - Respiratory disorder [Not Recovered/Not Resolved]
  - Pleural effusion [Recovering/Resolving]

NARRATIVE: CASE EVENT DATE: 20190325
